FAERS Safety Report 10032648 (Version 1)
Quarter: 2014Q1

REPORT INFORMATION
  Report Type: Spontaneous
  Country: US (occurrence: US)
  Receive Date: 20140324
  Receipt Date: 20140324
  Transmission Date: 20141002
  Serious: No
  Sender: FDA-Public Use
  Company Number: US-PFIZER INC-2014082596

PATIENT
  Age: 53 Year
  Sex: Male
  Weight: 72.56 kg

DRUGS (1)
  1. NICOTROL INHALER [Suspect]
     Indication: SMOKING CESSATION THERAPY
     Dosage: 4 MG, UNK
     Dates: start: 20140319

REACTIONS (2)
  - Drug effect incomplete [Unknown]
  - Product quality issue [Unknown]
